FAERS Safety Report 7049375-8 (Version None)
Quarter: 2010Q4

REPORT INFORMATION
  Report Type: 
  Country: None (occurrence: None)
  Receive Date: 20101018
  Receipt Date: 20101006
  Transmission Date: 20110411
  Serious: Yes (Death)
  Sender: FDA-Public Use
  Company Number: PT-ROCHE-731663

PATIENT
  Age: 30 Year
  Sex: Female

DRUGS (1)
  1. AVASTIN [Suspect]
     Dosage: AVASTIN 25 MG/ML CONCENTRATE FOR SOLUTION FOR INFUSION FOR THREE MONTHS
     Route: 065

REACTIONS (1)
  - MALIGNANT NEOPLASM PROGRESSION [None]
